FAERS Safety Report 5057541-6 (Version None)
Quarter: 2006Q3

REPORT INFORMATION
  Report Type: 
  Country: None (occurrence: None)
  Receive Date: 20060721
  Receipt Date: 20051110
  Transmission Date: 20061208
  Serious: No
  Sender: FDA-Public Use
  Company Number: US-GLAXOSMITHKLINE-A0581823A

PATIENT
  Age: 67 Year
  Sex: Female

DRUGS (5)
  1. AVANDIA [Suspect]
     Dosage: 4MG TWICE PER DAY
     Route: 048
     Dates: start: 20041001
  2. METFORMIN [Concomitant]
  3. QUINAPRIL + HYDROCHLOROTHIAZIDE [Concomitant]
  4. NORVASC [Concomitant]
  5. THYROID TAB [Concomitant]

REACTIONS (2)
  - MUSCLE SPASMS [None]
  - WEIGHT DECREASED [None]
